FAERS Safety Report 7716355-6 (Version None)
Quarter: 2011Q3

REPORT INFORMATION
  Report Type: 
  Country: None (occurrence: None)
  Receive Date: 20110829
  Receipt Date: 20110817
  Transmission Date: 20111222
  Serious: Yes (Other)
  Sender: FDA-Public Use
  Company Number: PHEH2011US01736

PATIENT
  Sex: Male

DRUGS (2)
  1. TENORMIN [Suspect]
     Dosage: 75 MG
  2. TEKTURNA [Suspect]
     Dosage: 320 MG, QD

REACTIONS (6)
  - DEMENTIA ALZHEIMER'S TYPE [None]
  - FEAR [None]
  - MEMORY IMPAIRMENT [None]
  - NIGHTMARE [None]
  - MUSCULOSKELETAL STIFFNESS [None]
  - WRONG TECHNIQUE IN DRUG USAGE PROCESS [None]
